FAERS Safety Report 13155860 (Version 1)
Quarter: 2017Q1

REPORT INFORMATION
  Report Type: Spontaneous
  Country: US (occurrence: US)
  Receive Date: 20170126
  Receipt Date: 20170126
  Transmission Date: 20170428
  Serious: No
  Sender: FDA-Public Use
  Company Number: US-ROCHE-766772

PATIENT
  Age: 57 Year
  Sex: Female
  Weight: 57.5 kg

DRUGS (4)
  1. ALPRAZOLAM. [Suspect]
     Active Substance: ALPRAZOLAM
     Indication: VOCAL CORD PARALYSIS
     Route: 065
  2. VALIUM [Suspect]
     Active Substance: DIAZEPAM
     Indication: VOCAL CORD PARALYSIS
     Route: 048
     Dates: start: 2009, end: 2009
  3. LEVAQUIN [Concomitant]
     Active Substance: LEVOFLOXACIN
     Route: 065
  4. XANAX [Suspect]
     Active Substance: ALPRAZOLAM
     Indication: VOCAL CORD PARALYSIS
     Route: 048

REACTIONS (1)
  - Anxiety [Unknown]

NARRATIVE: CASE EVENT DATE: 2009
